FAERS Safety Report 15390578 (Version 1)
Quarter: 2018Q3

REPORT INFORMATION
  Report Type: Spontaneous
  Country: US (occurrence: US)
  Receive Date: 20180909
  Receipt Date: 20180909
  Transmission Date: 20181010
  Serious: Yes (Life-Threatening, Disabling, Other)
  Sender: FDA-Public Use
  Company Number: None

PATIENT
  Age: 36 Year
  Sex: Female
  Weight: 61.83 kg

DRUGS (30)
  1. METHYLFOLATE [Concomitant]
     Active Substance: LEVOMEFOLATE CALCIUM
  2. SYSTANE GEL DROPS [Concomitant]
  3. IVMT [Concomitant]
  4. TOPAMAX [Concomitant]
     Active Substance: TOPIRAMATE
  5. VIT. D2 [Concomitant]
  6. BOTOX [Concomitant]
     Active Substance: ONABOTULINUMTOXINA
  7. SORIN^S K10 SAUCE [Concomitant]
  8. EPIPEN [Concomitant]
     Active Substance: EPINEPHRINE
  9. LIDOCAINE/MARCAINE [Concomitant]
     Active Substance: BUPIVACAINE\LIDOCAINE
  10. XANAX XR [Concomitant]
     Active Substance: ALPRAZOLAM
  11. FLEXERIL [Concomitant]
     Active Substance: CYCLOBENZAPRINE HYDROCHLORIDE
  12. AIMOVIG [Suspect]
     Active Substance: ERENUMAB-AOOE
     Indication: MIGRAINE
     Dosage: ?          QUANTITY:1 INJECTION(S);?
     Route: 058
     Dates: start: 20180823, end: 20180823
  13. BACTROBAN 2% [Concomitant]
  14. XANAX [Concomitant]
     Active Substance: ALPRAZOLAM
  15. PROCTOFOAM HC [Concomitant]
     Active Substance: HYDROCORTISONE ACETATE\PRAMOXINE HYDROCHLORIDE
  16. MACROBID [Concomitant]
     Active Substance: NITROFURANTOIN\NITROFURANTOIN MONOHYDRATE
  17. SYSTANE ULTRA [Concomitant]
     Active Substance: POLYETHYLENE GLYCOL 400\PROPYLENE GLYCOL
  18. VISTARIL [Concomitant]
     Active Substance: HYDROXYZINE PAMOATE
  19. FLONASE [Concomitant]
     Active Substance: FLUTICASONE PROPIONATE
  20. CARAFATE [Concomitant]
     Active Substance: SUCRALFATE
  21. MARCAINE [Concomitant]
     Active Substance: BUPIVACAINE HYDROCHLORIDE
  22. KETAMINE [Concomitant]
     Active Substance: KETAMINE
  23. DEXILANT [Concomitant]
     Active Substance: DEXLANSOPRAZOLE
  24. ALBUTEROL. [Concomitant]
     Active Substance: ALBUTEROL
  25. TYLENOL [Concomitant]
     Active Substance: ACETAMINOPHEN
  26. ZOFRAN [Concomitant]
     Active Substance: ONDANSETRON HYDROCHLORIDE
  27. TRILEPTAL [Concomitant]
     Active Substance: OXCARBAZEPINE
  28. ADDERALL XR [Concomitant]
     Active Substance: AMPHETAMINE ASPARTATE\AMPHETAMINE SULFATE\DEXTROAMPHETAMINE SACCHARATE\DEXTROAMPHETAMINE SULFATE
  29. MARINOL [Concomitant]
     Active Substance: DRONABINOL
  30. FLUOCINONIDE GEL 0.05% [Concomitant]

REACTIONS (5)
  - Urinary tract infection [None]
  - Mycobacterium test positive [None]
  - Respiratory tract infection [None]
  - Haemorrhoids thrombosed [None]
  - White blood cell count increased [None]

NARRATIVE: CASE EVENT DATE: 20180825
